FAERS Safety Report 26194713 (Version 1)
Quarter: 2025Q4

REPORT INFORMATION
  Report Type: Spontaneous
  Country: US (occurrence: US)
  Receive Date: 20251224
  Receipt Date: 20251224
  Transmission Date: 20260118
  Serious: No
  Sender: CELLTRION
  Company Number: US-CELLTRION INC.-2025US031304

PATIENT

DRUGS (2)
  1. TRUXIMA [Suspect]
     Active Substance: RITUXIMAB-ABBS
     Indication: Rheumatoid arthritis
     Dosage: DAY 1: 1000 MG ON DAY 1 AND DAY 14 EVERY 6 MONTHS
     Dates: start: 20250422
  2. TRUXIMA [Suspect]
     Active Substance: RITUXIMAB-ABBS
     Dosage: DAY 14: 1000 MG ON DAY 1 AND DAY 14 EVERY 6 MONTHS
     Dates: start: 20250508

REACTIONS (2)
  - Symptom recurrence [Unknown]
  - Therapeutic response shortened [Unknown]
